FAERS Safety Report 9522159 (Version 2)
Quarter: 2014Q1

REPORT INFORMATION
  Report Type: Spontaneous
  Country: GB (occurrence: GB)
  Receive Date: 20130913
  Receipt Date: 20140124
  Transmission Date: 20141002
  Serious: Yes (Disabling)
  Sender: FDA-Public Use
  Company Number: GB-ASTRAZENECA-2013SE67483

PATIENT
  Age: 77 Year
  Sex: Male
  Weight: 77 kg

DRUGS (13)
  1. BICALUTAMIDE [Suspect]
     Route: 048
     Dates: start: 20130823
  2. ALFUZOSIN [Concomitant]
     Dates: start: 20130424
  3. FINASTERIDE [Concomitant]
     Dates: start: 20130528
  4. FLUCONAZOLE [Concomitant]
     Dates: start: 20130618, end: 20130619
  5. GLICLAZIDE [Concomitant]
     Dates: start: 20130528
  6. GLICLAZIDE [Concomitant]
  7. METFORMIN [Concomitant]
     Dates: start: 20130528
  8. OMEPRAZOLE [Concomitant]
     Dates: start: 20130528
  9. SIMVASTATIN [Concomitant]
     Dates: start: 20130528
  10. SITAGLIPTIN [Concomitant]
     Dates: start: 20130528, end: 20130529
  11. SITAGLIPTIN [Concomitant]
     Dates: start: 20130620, end: 20130621
  12. SITAGLIPTIN [Concomitant]
     Dates: start: 20130722, end: 20130723
  13. SITAGLIPTIN [Concomitant]
     Dates: start: 20130815, end: 20130816

REACTIONS (2)
  - Hypoglycaemia [Recovered/Resolved]
  - Condition aggravated [Recovered/Resolved]
